FAERS Safety Report 8174759-4 (Version None)
Quarter: 2012Q1

REPORT INFORMATION
  Report Type: 
  Country: None (occurrence: None)
  Receive Date: 20120229
  Receipt Date: 20120214
  Transmission Date: 20120608
  Serious: No
  Sender: FDA-Public Use
  Company Number: PHHY2012IT015147

PATIENT
  Age: 68 Year
  Sex: Male

DRUGS (2)
  1. CLARITHROMYCIN [Interacting]
     Dosage: 500 MG, BID
     Dates: start: 20110608, end: 20110730
  2. NILOTINIB [Suspect]
     Indication: CHRONIC MYELOID LEUKAEMIA
     Dosage: 600 MG, BID

REACTIONS (3)
  - NO THERAPEUTIC RESPONSE [None]
  - DRUG INTOLERANCE [None]
  - DRUG INTERACTION [None]
